FAERS Safety Report 13255999 (Version 1)
Quarter: 2017Q1

REPORT INFORMATION
  Report Type: Spontaneous
  Country: BR (occurrence: BR)
  Receive Date: 20170221
  Receipt Date: 20170221
  Transmission Date: 20170428
  Serious: Yes (Disabling, Other)
  Sender: FDA-Public Use
  Company Number: BR-PFIZER INC-2017067879

PATIENT
  Age: 87 Year
  Sex: Male

DRUGS (4)
  1. SELOZOK [Concomitant]
     Active Substance: METOPROLOL SUCCINATE
     Dosage: UNK
  2. ASPIRINA [Concomitant]
     Active Substance: ASPIRIN
     Dosage: UNK
  3. ANCORON [Concomitant]
     Active Substance: AMIODARONE HYDROCHLORIDE
     Dosage: UNK
  4. XALATAN [Suspect]
     Active Substance: LATANOPROST
     Indication: GLAUCOMA
     Dosage: ONE DROP EACH EYE, UNSPECIFIED FREQUENCY
     Route: 047
     Dates: start: 2007

REACTIONS (3)
  - Fall [Unknown]
  - Femur fracture [Unknown]
  - Gait disturbance [Unknown]
